FAERS Safety Report 5599408-0 (Version None)
Quarter: 2008Q1

REPORT INFORMATION
  Report Type: 
  Country: None (occurrence: None)
  Receive Date: 20080122
  Receipt Date: 20080110
  Transmission Date: 20080703
  Serious: Yes (Other)
  Sender: FDA-Public Use
  Company Number: DE-PFIZER INC-2007099253

PATIENT
  Sex: Female

DRUGS (8)
  1. LYRICA [Suspect]
     Indication: HERPES ZOSTER OPHTHALMIC
     Dosage: TEXT:150MG-300MG
     Route: 048
     Dates: start: 20071008, end: 20071018
  2. LYRICA [Suspect]
     Indication: HEADACHE
  3. LYRICA [Suspect]
     Indication: NEURALGIA
  4. TEMAZEPAM [Concomitant]
  5. TRANYLCYPROMINE SULFATE [Concomitant]
  6. LAMOTRIGINE [Concomitant]
     Route: 048
  7. SEROQUEL [Concomitant]
     Route: 048
  8. JATROSOM [Concomitant]
     Route: 048

REACTIONS (5)
  - ATAXIA [None]
  - COORDINATION ABNORMAL [None]
  - DISTURBANCE IN ATTENTION [None]
  - DYSARTHRIA [None]
  - TREMOR [None]
